FAERS Safety Report 22303344 (Version 1)
Quarter: 2023Q2

REPORT INFORMATION
  Report Type: Spontaneous
  Country: DE (occurrence: DE)
  Receive Date: 20230510
  Receipt Date: 20230510
  Transmission Date: 20230722
  Serious: Yes (Hospitalization)
  Sender: FDA-Public Use
  Company Number: DE-OTSUKA-2023_011910

PATIENT
  Age: 38 Year
  Sex: Female

DRUGS (1)
  1. ABILIFY [Suspect]
     Active Substance: ARIPIPRAZOLE
     Indication: Schizophrenia
     Dosage: 20 MG, QD
     Route: 048

REACTIONS (5)
  - Suspiciousness [Unknown]
  - Distractibility [Unknown]
  - Tension [Unknown]
  - Psychotic disorder [Unknown]
  - Drug level abnormal [Unknown]
